FAERS Safety Report 4897887-5 (Version None)
Quarter: 2006Q1

REPORT INFORMATION
  Report Type: 
  Country: None (occurrence: None)
  Receive Date: 20060130
  Receipt Date: 20060130
  Transmission Date: 20060701
  Serious: Yes (Hospitalization, Other)
  Sender: FDA-Public Use
  Company Number: None

PATIENT
  Sex: Female
  Weight: 114.9 kg

DRUGS (2)
  1. ETOPOSIDE [Suspect]
     Indication: ACUTE LYMPHOCYTIC LEUKAEMIA
     Dosage: 3520 MG
     Dates: start: 20060110
  2. GM-CSF [Suspect]
     Indication: ACUTE LYMPHOCYTIC LEUKAEMIA
     Dosage: 4150 MCG,  415 MCG PER DAY
     Dates: start: 20060110, end: 20060125

REACTIONS (3)
  - ABDOMINAL PAIN [None]
  - FEBRILE NEUTROPENIA [None]
  - STEM CELL TRANSPLANT [None]
